FAERS Safety Report 17721011 (Version 1)
Quarter: 2020Q2

REPORT INFORMATION
  Report Type: Spontaneous
  Country: PL (occurrence: PL)
  Receive Date: 20200428
  Receipt Date: 20200428
  Transmission Date: 20200714
  Serious: Yes (Hospitalization)
  Sender: FDA-Public Use
  Company Number: PL-TEVA-2020-PL-1226955

PATIENT
  Age: 46 Year
  Sex: Male
  Weight: 70 kg

DRUGS (3)
  1. LEVOFLOXACIN. [Suspect]
     Active Substance: LEVOFLOXACIN
     Indication: RESPIRATORY TRACT INFECTION
     Dosage: 1 DF
     Route: 048
     Dates: start: 20190205, end: 20190208
  2. IBUPROFEN. [Suspect]
     Active Substance: IBUPROFEN
     Indication: RESPIRATORY TRACT INFECTION
     Dosage: 400 MG
     Route: 048
     Dates: start: 20190202, end: 20190206
  3. NEOSINE [Suspect]
     Active Substance: INOSINE PRANOBEX
     Indication: RESPIRATORY TRACT INFECTION
     Dosage: 1 DF
     Route: 048
     Dates: start: 20190202, end: 20190203

REACTIONS (2)
  - Erythema [Recovered/Resolved]
  - Rash papular [Recovered/Resolved]

NARRATIVE: CASE EVENT DATE: 20190203
